FAERS Safety Report 10360099 (Version 1)
Quarter: 2014Q3

REPORT INFORMATION
  Report Type: Spontaneous
  Country: US (occurrence: None)
  Receive Date: 20140801
  Receipt Date: 20140801
  Transmission Date: 20150326
  Serious: Yes (Life-Threatening, Hospitalization)
  Sender: FDA-Public Use
  Company Number: None

PATIENT
  Age: 81 Year
  Sex: Male

DRUGS (2)
  1. XARELTO [Suspect]
     Active Substance: RIVAROXABAN
     Indication: CORONARY ARTERY DISEASE
     Dosage: 1 TABLET QD ORAL
     Route: 048
  2. XARELTO [Suspect]
     Active Substance: RIVAROXABAN
     Indication: ISCHAEMIC CARDIOMYOPATHY
     Dosage: 1 TABLET QD ORAL
     Route: 048

REACTIONS (2)
  - Urinary retention [None]
  - Haematuria [None]

NARRATIVE: CASE EVENT DATE: 20140610
